FAERS Safety Report 6311566-9 (Version None)
Quarter: 2009Q3

REPORT INFORMATION
  Report Type: 
  Country: None (occurrence: None)
  Receive Date: 20090813
  Receipt Date: 20090813
  Transmission Date: 20100115
  Serious: Yes (Life-Threatening)
  Sender: FDA-Public Use
  Company Number: None

PATIENT
  Age: 4 Hour
  Sex: Male
  Weight: 1.27 kg

DRUGS (1)
  1. LIPOSYN 20% [Suspect]
     Indication: PREMATURE BABY
     Dosage: 20% 0.8 ML/HR IV 19.2 ML VOL LIMIT 7:00-735AM
     Route: 042
     Dates: start: 20090802

REACTIONS (6)
  - BLOOD GASES ABNORMAL [None]
  - DYSPNOEA [None]
  - INCORRECT DRUG ADMINISTRATION RATE [None]
  - INFUSION RELATED REACTION [None]
  - NEONATAL DISORDER [None]
  - SYRINGE ISSUE [None]
